FAERS Safety Report 14347204 (Version 1)
Quarter: 2018Q1

REPORT INFORMATION
  Report Type: Spontaneous
  Country: US (occurrence: US)
  Receive Date: 20180102
  Receipt Date: 20180102
  Transmission Date: 20180509
  Serious: Yes (Disabling)
  Sender: FDA-Public Use
  Company Number: None

PATIENT
  Age: 68 Year
  Sex: Female
  Weight: 77.4 kg

DRUGS (18)
  1. LEVAQUIN [Suspect]
     Active Substance: LEVOFLOXACIN
     Indication: SINUSITIS
     Dates: start: 20171218, end: 20171222
  2. TRAMADOL. [Concomitant]
     Active Substance: TRAMADOL
  3. VITAMIN B COMPLEX [Concomitant]
     Active Substance: CYANOCOBALAMIN\DEXPANTHENOL\NIACINAMIDE\PYRIDOXINE HYDROCHLORIDE\RIBOFLAVIN 5^-PHOSPHATE SODIUM\THIAMINE HYDROCHLORIDE\VITAMIN B COMPLEX
  4. ACETAMINOPHEN. [Concomitant]
     Active Substance: ACETAMINOPHEN
  5. LISINOPRIL. [Concomitant]
     Active Substance: LISINOPRIL
  6. CETIRIZINE [Concomitant]
     Active Substance: CETIRIZINE HYDROCHLORIDE
  7. RED YEAST RICE [Concomitant]
     Active Substance: DIETARY SUPPLEMENT
  8. CENTRUM SILVER [Concomitant]
     Active Substance: MINERALS\VITAMINS
  9. L-THYROXINE [Concomitant]
     Active Substance: LEVOTHYROXINE
  10. ESZOPICLONE. [Concomitant]
     Active Substance: ESZOPICLONE
  11. VITAMIN D3 [Concomitant]
     Active Substance: CHOLECALCIFEROL
  12. MAGNESIUM [Concomitant]
     Active Substance: MAGNESIUM
  13. COENZYME Q10 [Concomitant]
     Active Substance: UBIDECARENONE
  14. CPAP MACHINE [Concomitant]
  15. MULTI VITAMIN [Concomitant]
     Active Substance: VITAMINS
  16. OXYCODONE [Concomitant]
     Active Substance: OXYCODONE
  17. METHOCARBAMOL. [Concomitant]
     Active Substance: METHOCARBAMOL
  18. CALCIUM [Concomitant]
     Active Substance: CALCIUM

REACTIONS (7)
  - Musculoskeletal stiffness [None]
  - Pain [None]
  - Joint lock [None]
  - Muscle tightness [None]
  - Arthralgia [None]
  - Pain in extremity [None]
  - Musculoskeletal discomfort [None]

NARRATIVE: CASE EVENT DATE: 20171222
